FAERS Safety Report 15000900 (Version 1)
Quarter: 2018Q2

REPORT INFORMATION
  Report Type: Spontaneous
  Country: US (occurrence: US)
  Receive Date: 20180521
  Receipt Date: 20180521
  Transmission Date: 20180711
  Serious: Yes (Other)
  Sender: FDA-Public Use
  Company Number: None

PATIENT
  Age: 65 Year
  Sex: Female
  Weight: 97.3 kg

DRUGS (1)
  1. TAXOTERE [Suspect]
     Active Substance: DOCETAXEL
     Indication: OVARIAN CANCER
     Route: 042
     Dates: start: 20180412

REACTIONS (5)
  - Myalgia [None]
  - Skin exfoliation [None]
  - Erythema [None]
  - Tenderness [None]
  - Fatigue [None]

NARRATIVE: CASE EVENT DATE: 20180412
